FAERS Safety Report 15292341 (Version 2)
Quarter: 2022Q1

REPORT INFORMATION
  Report Type: Spontaneous
  Country: ES (occurrence: ES)
  Receive Date: 20180818
  Receipt Date: 20220307
  Transmission Date: 20220423
  Serious: Yes (Hospitalization, Other)
  Sender: FDA-Public Use
  Company Number: ES-AUROBINDO-AUR-APL-2018-042338

PATIENT
  Age: 41 Year
  Sex: Male
  Weight: 148 kg

DRUGS (6)
  1. RANITIDINE [Suspect]
     Active Substance: RANITIDINE
     Indication: Product used for unknown indication
     Dosage: 100 MILLIGRAM, ONCE A DAY
     Route: 048
     Dates: start: 20170811, end: 20170905
  2. PANTOPRAZOLE [Suspect]
     Active Substance: PANTOPRAZOLE
     Indication: Product used for unknown indication
     Dosage: 80 MILLIGRAM, ONCE A DAY
     Route: 042
     Dates: start: 20170731, end: 20170901
  3. METOCLOPRAMIDE [Suspect]
     Active Substance: METOCLOPRAMIDE
     Indication: Nausea
     Dosage: 30 MILLIGRAM, ONCE A DAY
     Route: 042
     Dates: start: 20170730, end: 20170831
  4. CLOXACILLIN [Suspect]
     Active Substance: CLOXACILLIN
     Indication: Bacteraemia
     Dosage: 12 GRAM, ONCE A DAY
     Route: 042
     Dates: start: 20170817, end: 20170901
  5. VANCOMYCIN [Suspect]
     Active Substance: VANCOMYCIN
     Indication: Bacteraemia
     Dosage: 2 GRAM, ONCE A DAY
     Route: 042
     Dates: start: 20170818, end: 20170830
  6. ONDANSETRON [Suspect]
     Active Substance: ONDANSETRON
     Indication: Product used for unknown indication
     Dosage: 24 MILLIGRAM, ONCE A DAY
     Route: 042
     Dates: start: 20170731, end: 20170905

REACTIONS (1)
  - Drug reaction with eosinophilia and systemic symptoms [Recovered/Resolved]

NARRATIVE: CASE EVENT DATE: 20170902
